FAERS Safety Report 6787646-0 (Version None)
Quarter: 2010Q2

REPORT INFORMATION
  Report Type: 
  Country: None (occurrence: None)
  Receive Date: 20100623
  Receipt Date: 20050627
  Transmission Date: 20101027
  Serious: No
  Sender: FDA-Public Use
  Company Number: US-PFIZER INC-2007058613

PATIENT

DRUGS (1)
  1. DEPO-PROVERA SUSPENSION/INJ [Suspect]
     Indication: CONTRACEPTION
     Dosage: LAST INJECTION
     Dates: start: 20050510, end: 20050510

REACTIONS (1)
  - DRUG EXPOSURE DURING PREGNANCY [None]
